FAERS Safety Report 19221923 (Version 1)
Quarter: 2021Q2

REPORT INFORMATION
  Report Type: Spontaneous
  Country: US (occurrence: US)
  Receive Date: 20210505
  Receipt Date: 20210505
  Transmission Date: 20210717
  Serious: No
  Sender: FDA-Public Use
  Company Number: None

PATIENT
  Age: 70 Year
  Sex: Male
  Weight: 90 kg

DRUGS (12)
  1. ASPIRIN. [Concomitant]
     Active Substance: ASPIRIN
  2. LOSARTAN. [Concomitant]
     Active Substance: LOSARTAN
  3. TAMSULOSIN [Concomitant]
     Active Substance: TAMSULOSIN
  4. PREVACID [Concomitant]
     Active Substance: LANSOPRAZOLE
  5. TRAMADOL. [Concomitant]
     Active Substance: TRAMADOL
  6. ZELBORAF [Suspect]
     Active Substance: VEMURAFENIB
     Indication: THYROID CANCER
     Route: 048
     Dates: start: 20210405
  7. MIRALAX [Concomitant]
     Active Substance: POLYETHYLENE GLYCOL 3350
  8. PROCHLORPERAZINE. [Concomitant]
     Active Substance: PROCHLORPERAZINE
  9. CARVEDILOL. [Concomitant]
     Active Substance: CARVEDILOL
  10. MAGNESIUM [Concomitant]
     Active Substance: MAGNESIUM
  11. COLACE [Concomitant]
     Active Substance: DOCUSATE SODIUM
  12. LEVOTHYROXINE. [Concomitant]
     Active Substance: LEVOTHYROXINE

REACTIONS (1)
  - Renal disorder [None]

NARRATIVE: CASE EVENT DATE: 20210505
